FAERS Safety Report 17907930 (Version 1)
Quarter: 2020Q2

REPORT INFORMATION
  Report Type: Spontaneous
  Country: US (occurrence: US)
  Receive Date: 20200617
  Receipt Date: 20200617
  Transmission Date: 20200714
  Serious: No
  Sender: FDA-Public Use
  Company Number: None

PATIENT
  Age: 76 Year
  Sex: Male
  Weight: 107.1 kg

DRUGS (12)
  1. ABIRATERONE. [Suspect]
     Active Substance: ABIRATERONE ACETATE
     Indication: PROSTATE CANCER
     Route: 048
     Dates: start: 20190502, end: 20200617
  2. WARFARIN 5MG [Concomitant]
     Active Substance: WARFARIN
  3. GABAPENTIN 300MG [Concomitant]
     Active Substance: GABAPENTIN
  4. METFORMIN 500MG [Concomitant]
     Active Substance: METFORMIN HYDROCHLORIDE
  5. PROCHLORPERAZINE 10MG [Concomitant]
  6. PREDNISONE 5MG [Concomitant]
     Active Substance: PREDNISONE
  7. TRIAMCINOLONE 0.1% [Concomitant]
     Active Substance: TRIAMCINOLONE
  8. PROTONIX [Concomitant]
     Active Substance: PANTOPRAZOLE SODIUM
  9. MELOXICAM 15MG [Concomitant]
     Active Substance: MELOXICAM
  10. SIMVASTATIN 80MG [Concomitant]
     Active Substance: SIMVASTATIN
  11. DIGOXIN 125MCG [Concomitant]
  12. NORCO 5-325MG [Concomitant]

REACTIONS (1)
  - Disease progression [None]

NARRATIVE: CASE EVENT DATE: 20200617
